FAERS Safety Report 20899790 (Version 1)
Quarter: 2022Q2

REPORT INFORMATION
  Report Type: Spontaneous
  Country: US (occurrence: US)
  Receive Date: 20220601
  Receipt Date: 20220601
  Transmission Date: 20220721
  Serious: Yes (Life-Threatening, Hospitalization)
  Sender: FDA-Public Use
  Company Number: US-LUPIN PHARMACEUTICALS INC.-2022-07847

PATIENT
  Age: 41 Year
  Sex: Male

DRUGS (1)
  1. CALCIUM ACETATE [Suspect]
     Active Substance: CALCIUM ACETATE
     Indication: Product used for unknown indication
     Dosage: 667 MILLIGRAM, TID (3 TIMES DAILY)
     Route: 065

REACTIONS (3)
  - Metabolic alkalosis [Recovering/Resolving]
  - Pica [Unknown]
  - Cognitive disorder [Unknown]
